FAERS Safety Report 7084434-5 (Version None)
Quarter: 2010Q4

REPORT INFORMATION
  Report Type: 
  Country: None (occurrence: None)
  Receive Date: 20101104
  Receipt Date: 20101103
  Transmission Date: 20110411
  Serious: Yes (Other)
  Sender: FDA-Public Use
  Company Number: US-PFIZER INC-2010096533

PATIENT
  Sex: Male

DRUGS (1)
  1. CHANTIX [Suspect]
     Indication: SMOKING CESSATION THERAPY
     Dosage: 0.5 AND THEN 1 MG
     Dates: start: 20080401, end: 20081201

REACTIONS (4)
  - ANXIETY [None]
  - DEPRESSION [None]
  - MENTAL DISORDER [None]
  - SUICIDAL IDEATION [None]
